FAERS Safety Report 10606504 (Version 1)
Quarter: 2014Q4

REPORT INFORMATION
  Report Type: Spontaneous
  Country: US (occurrence: None)
  Receive Date: 20141124
  Receipt Date: 20141124
  Transmission Date: 20150529
  Serious: No
  Sender: FDA-Public Use
  Company Number: None

PATIENT
  Age: 34 Year
  Sex: Female
  Weight: 62.14 kg

DRUGS (1)
  1. COPAXONE [Suspect]
     Active Substance: GLATIRAMER ACETATE
     Indication: MULTIPLE SCLEROSIS
     Dosage: 1 INJECTION, 3X/WEEK, APPLIED TO A SURFACE USUALLY THE SKIN
     Dates: start: 20140617, end: 20141121

REACTIONS (7)
  - Nausea [None]
  - Alopecia [None]
  - Chest discomfort [None]
  - Flushing [None]
  - Tinnitus [None]
  - Photosensitivity reaction [None]
  - Dyspnoea [None]
